FAERS Safety Report 19733713 (Version 1)
Quarter: 2021Q3

REPORT INFORMATION
  Report Type: Spontaneous
  Country: CA (occurrence: CA)
  Receive Date: 20210823
  Receipt Date: 20210823
  Transmission Date: 20211014
  Serious: Yes (Hospitalization)
  Sender: FDA-Public Use
  Company Number: CA-BEH-2021135067

PATIENT
  Age: 84 Year
  Sex: Male

DRUGS (1)
  1. ALBUREX [Suspect]
     Active Substance: ALBUMIN HUMAN
     Dosage: 100 MILLILITER (1 VIAL), TOT
     Route: 065
     Dates: start: 20210812, end: 20210812

REACTIONS (3)
  - Pyrexia [Unknown]
  - Dyspnoea [Unknown]
  - Chills [Unknown]

NARRATIVE: CASE EVENT DATE: 20210812
